FAERS Safety Report 9785717 (Version 1)
Quarter: 2013Q4

REPORT INFORMATION
  Report Type: Spontaneous
  Country: ES (occurrence: None)
  Receive Date: 20131224
  Receipt Date: 20131224
  Transmission Date: 20140711
  Serious: Yes (Hospitalization, Other)
  Sender: FDA-Public Use
  Company Number: AUR-APL-2013-10637

PATIENT
  Age: 70 Year
  Sex: Male

DRUGS (2)
  1. METFORMIN (METFORMIN) [Suspect]
     Indication: TYPE 2 DIABETES MELLITUS
     Dosage: 2550 MG ( 850 MG, 3 IN 1 D), UNKNOWN
  2. GLICLAZIDE ( GLICLAZIDE) [Concomitant]

REACTIONS (4)
  - Lactic acidosis [None]
  - Continuous haemodiafiltration [None]
  - Hyperkalaemia [None]
  - Renal impairment [None]
